FAERS Safety Report 9065860 (Version 1)
Quarter: 2013Q1

REPORT INFORMATION
  Report Type: Report from Study
  Country: US (occurrence: US)
  Receive Date: 20130130
  Receipt Date: 20130130
  Transmission Date: 20140127
  Serious: No
  Sender: FDA-Public Use
  Company Number: US-ABBOTT-12P-163-0977686-00

PATIENT
  Age: 62 Year
  Sex: Female
  Weight: 120.31 kg

DRUGS (11)
  1. HUMIRA [Suspect]
     Indication: PSORIASIS
     Route: 058
     Dates: start: 20120830
  2. METHOTREXATE [Suspect]
     Indication: PSORIASIS
  3. LEXAPRO [Concomitant]
     Indication: DEPRESSION
  4. VYTORIN [Concomitant]
     Indication: BLOOD CHOLESTEROL INCREASED
  5. SINGULAIR [Concomitant]
     Indication: ASTHMA
  6. FOSAMAX [Concomitant]
     Indication: OSTEOPOROSIS
  7. CALCIUM [Concomitant]
     Indication: OSTEOPOROSIS
  8. CENTRUM FOR WOMEN [Concomitant]
     Indication: VITAMIN SUPPLEMENTATION
  9. ADVAIR [Concomitant]
     Indication: ASTHMA
  10. PROVENTIL [Concomitant]
     Indication: ASTHMA
  11. NEXIUM [Concomitant]
     Indication: GASTROOESOPHAGEAL REFLUX DISEASE

REACTIONS (8)
  - Nasopharyngitis [Not Recovered/Not Resolved]
  - Sinus congestion [Not Recovered/Not Resolved]
  - Rhinorrhoea [Not Recovered/Not Resolved]
  - Headache [Not Recovered/Not Resolved]
  - Fatigue [Not Recovered/Not Resolved]
  - Insomnia [Not Recovered/Not Resolved]
  - Respiratory tract congestion [Not Recovered/Not Resolved]
  - Sinusitis [Not Recovered/Not Resolved]
